FAERS Safety Report 11884787 (Version 1)
Quarter: 2016Q1

REPORT INFORMATION
  Report Type: Spontaneous
  Country: US (occurrence: US)
  Receive Date: 20160104
  Receipt Date: 20160104
  Transmission Date: 20160526
  Serious: Yes (Hospitalization)
  Sender: FDA-Public Use
  Company Number: US-BEH-2015057309

PATIENT
  Age: 9 Year
  Sex: Male
  Weight: 20 kg

DRUGS (10)
  1. HIZENTRA [Suspect]
     Active Substance: HUMAN IMMUNOGLOBULIN G
     Route: 058
  2. HIZENTRA [Suspect]
     Active Substance: HUMAN IMMUNOGLOBULIN G
     Indication: IMMUNODEFICIENCY COMMON VARIABLE
  3. PHENOBARBITAL. [Concomitant]
     Active Substance: PHENOBARBITAL
  4. ALBUTEROL. [Concomitant]
     Active Substance: ALBUTEROL
  5. CHILDRENS MOTRIN [Concomitant]
     Active Substance: IBUPROFEN
  6. DIPHENHYDRAMINE. [Concomitant]
     Active Substance: DIPHENHYDRAMINE
  7. KEPPRA [Concomitant]
     Active Substance: LEVETIRACETAM
  8. LIDOCAINE/PRILOCAINE [Concomitant]
  9. EPIPEN JR [Concomitant]
     Active Substance: EPINEPHRINE
  10. OXYGEN. [Concomitant]
     Active Substance: OXYGEN

REACTIONS (1)
  - Seizure [Unknown]

NARRATIVE: CASE EVENT DATE: 20151215
